FAERS Safety Report 21036648 (Version 1)
Quarter: 2022Q3

REPORT INFORMATION
  Report Type: Spontaneous
  Country: NO (occurrence: NO)
  Receive Date: 20220702
  Receipt Date: 20220702
  Transmission Date: 20221027
  Serious: Yes (Life-Threatening, Hospitalization, Disabling)
  Sender: FDA-Public Use
  Company Number: None

PATIENT
  Sex: Male
  Weight: 97 kg

DRUGS (2)
  1. OLANZAPINE [Suspect]
     Active Substance: OLANZAPINE
     Indication: Delusion of grandeur
     Dosage: 20 MILLIGRAM DAILY; 10 MG TIMES TWO AT NIGHT, FORM STRENGTH: 10 MG, ADDITIONAL INFO: N05AH03 - OLANZ
     Route: 048
     Dates: end: 2022
  2. LITHIUM SULFATE [Suspect]
     Active Substance: LITHIUM SULFATE
     Indication: Delusion of grandeur
     Dosage: FORM STRENGTH : 83 MG, UNIT DOSE: 83 MG , FREQUENCY TIME: 8 HOURS, DURATION : 5 YEARS, ADDITIONAL IN
     Route: 048
     Dates: start: 2016, end: 2021

REACTIONS (10)
  - Gait disturbance [Recovering/Resolving]
  - General physical health deterioration [Recovering/Resolving]
  - Anxiety [Recovering/Resolving]
  - Toxicity to various agents [Recovering/Resolving]
  - Haemorrhoids [Recovering/Resolving]
  - Mania [Recovering/Resolving]
  - Diarrhoea [Recovering/Resolving]
  - Amnesia [Recovering/Resolving]
  - Neoplasm malignant [Recovering/Resolving]
  - Nightmare [Recovering/Resolving]

NARRATIVE: CASE EVENT DATE: 20040101
